FAERS Safety Report 15392112 (Version 3)
Quarter: 2019Q2

REPORT INFORMATION
  Report Type: Spontaneous
  Country: US (occurrence: US)
  Receive Date: 20180917
  Receipt Date: 20190405
  Transmission Date: 20190711
  Serious: No
  Sender: FDA-Public Use
  Company Number: US-PFIZER INC-2018371062

PATIENT
  Age: 72 Year
  Sex: Male

DRUGS (4)
  1. ALDACTONE [Suspect]
     Active Substance: SPIRONOLACTONE
     Indication: HYPERALDOSTERONISM
     Dosage: 100 MG, UNK
  2. ALTACE [Concomitant]
     Active Substance: RAMIPRIL
     Dosage: UNK
  3. NEXIUM I.V. [Concomitant]
     Active Substance: ESOMEPRAZOLE SODIUM
     Dosage: 40 MG, UNK
  4. ALDACTONE [Suspect]
     Active Substance: SPIRONOLACTONE
     Dosage: 75 MG, DAILY (75MG/DAY;50 MG-AM, 25 MG-NOON)

REACTIONS (4)
  - Ocular discomfort [Unknown]
  - Ear discomfort [Unknown]
  - Dizziness [Unknown]
  - Asthenia [Unknown]
